FAERS Safety Report 25881851 (Version 1)
Quarter: 2025Q4

REPORT INFORMATION
  Report Type: Spontaneous
  Country: EU (occurrence: EU)
  Receive Date: 20251005
  Receipt Date: 20251005
  Transmission Date: 20260117
  Serious: Yes (Other)
  Sender: BIOGEN
  Company Number: None

PATIENT
  Age: 40 Year
  Sex: Male
  Weight: 65 kg

DRUGS (1)
  1. TECFIDERA [Suspect]
     Active Substance: DIMETHYL FUMARATE
     Indication: Relapsing-remitting multiple sclerosis
     Dosage: 2X1 DAILY
     Route: 050
     Dates: start: 202401, end: 202506

REACTIONS (1)
  - Constipation [Recovered/Resolved with Sequelae]

NARRATIVE: CASE EVENT DATE: 20240201
